FAERS Safety Report 16237569 (Version 1)
Quarter: 2019Q2

REPORT INFORMATION
  Report Type: Spontaneous
  Country: US (occurrence: US)
  Receive Date: 20190424
  Receipt Date: 20190424
  Transmission Date: 20190711
  Serious: No
  Sender: FDA-Public Use
  Company Number: None

PATIENT
  Age: 7 Year
  Sex: Male
  Weight: 18.45 kg

DRUGS (3)
  1. MIRALAX [Suspect]
     Active Substance: POLYETHYLENE GLYCOL 3350
     Indication: CONSTIPATION
     Route: 048
     Dates: start: 20171103, end: 20171105
  2. CHILDREN^S PROBIOTIC [Concomitant]
  3. CHILDREN^S MULTIVITAMIN [Concomitant]

REACTIONS (6)
  - Anger [None]
  - Aggression [None]
  - Anxiety [None]
  - Self esteem decreased [None]
  - Feeling abnormal [None]
  - Depression [None]

NARRATIVE: CASE EVENT DATE: 20171103
